FAERS Safety Report 7932908-4 (Version None)
Quarter: 2011Q4

REPORT INFORMATION
  Report Type: 
  Country: None (occurrence: None)
  Receive Date: 20111122
  Receipt Date: 20111120
  Transmission Date: 20120403
  Serious: No
  Sender: FDA-Public Use
  Company Number: US-PFIZER INC-2011283397

PATIENT
  Sex: Male
  Weight: 82.993 kg

DRUGS (1)
  1. VIAGRA [Suspect]
     Dosage: UNK
     Route: 048
     Dates: start: 20111118

REACTIONS (2)
  - PENILE SWELLING [None]
  - ERECTILE DYSFUNCTION [None]
